FAERS Safety Report 7833115-6 (Version None)
Quarter: 2011Q4

REPORT INFORMATION
  Report Type: 
  Country: None (occurrence: None)
  Receive Date: 20111024
  Receipt Date: 20111012
  Transmission Date: 20120403
  Serious: Yes (Hospitalization)
  Sender: FDA-Public Use
  Company Number: BE-JNJFOC-20110911972

PATIENT
  Sex: Male

DRUGS (4)
  1. LASIX [Concomitant]
     Route: 048
  2. ABIRATERONE ACETATE [Suspect]
     Indication: PROSTATE CANCER METASTATIC
     Route: 048
     Dates: start: 20110726, end: 20110929
  3. PREDNISONE [Suspect]
     Indication: PROSTATE CANCER METASTATIC
     Route: 048
     Dates: start: 20100412
  4. ABIRATERONE ACETATE [Suspect]
     Route: 048

REACTIONS (1)
  - PULMONARY EMBOLISM [None]
